FAERS Safety Report 22631523 (Version 3)
Quarter: 2024Q4

REPORT INFORMATION
  Report Type: Report from Study
  Country: CA (occurrence: CA)
  Receive Date: 20230623
  Receipt Date: 20241125
  Transmission Date: 20250115
  Serious: Yes (Other)
  Sender: NOVARTIS
  Company Number: CA-002147023-NVSC2023CA108065

PATIENT
  Age: 61 Year
  Sex: Female

DRUGS (5)
  1. MAYZENT [Suspect]
     Active Substance: SIPONIMOD
     Indication: Secondary progressive multiple sclerosis
     Dosage: UNK
     Route: 048
     Dates: start: 20230508
  2. MAYZENT [Suspect]
     Active Substance: SIPONIMOD
     Dosage: 2 MG, QOD
     Route: 065
  3. MAYZENT [Suspect]
     Active Substance: SIPONIMOD
     Dosage: 1 MG, QD
     Route: 065
  4. MAYZENT [Suspect]
     Active Substance: SIPONIMOD
     Dosage: 0.75 MG, QD
     Route: 048
  5. MAYZENT [Suspect]
     Active Substance: SIPONIMOD
     Dosage: 3 DOSAGE FORM (3 PILLS OF 0.25 MG), QD
     Route: 065

REACTIONS (23)
  - Hemiparesis [Unknown]
  - Multiple sclerosis relapse [Unknown]
  - Crohn^s disease [Not Recovered/Not Resolved]
  - Colitis [Unknown]
  - Small intestinal haemorrhage [Unknown]
  - Palpitations [Unknown]
  - Visual impairment [Unknown]
  - Blood pressure fluctuation [Unknown]
  - Lymphoedema [Unknown]
  - Balance disorder [Unknown]
  - Stress [Unknown]
  - Poor quality sleep [Unknown]
  - Body temperature decreased [Unknown]
  - Weight decreased [Unknown]
  - Lymphocyte count decreased [Recovering/Resolving]
  - Peripheral swelling [Recovered/Resolved]
  - Alanine aminotransferase increased [Unknown]
  - Dizziness [Unknown]
  - Diarrhoea [Unknown]
  - Abdominal discomfort [Unknown]
  - Fatigue [Unknown]
  - Hypertension [Unknown]
  - Inflammation [Unknown]

NARRATIVE: CASE EVENT DATE: 20230508
